FAERS Safety Report 7159903-X (Version None)
Quarter: 2010Q4

REPORT INFORMATION
  Report Type: 
  Country: None (occurrence: None)
  Receive Date: 20101214
  Receipt Date: 20101201
  Transmission Date: 20110411
  Serious: Yes (Hospitalization, Disabling, Other)
  Sender: FDA-Public Use
  Company Number: PHHO2010IL18809

PATIENT
  Sex: Female
  Weight: 46.7 kg

DRUGS (7)
  1. FTY 720 FTY+CAP+MSC [Suspect]
     Indication: MULTIPLE SCLEROSIS
     Dosage: DOSE BLINDED
     Route: 048
     Dates: start: 20090630, end: 20100308
  2. FTY 720 FTY+CAP+MSC [Suspect]
     Dosage: 0.5MG
     Route: 048
     Dates: start: 20100309, end: 20101026
  3. BACLOFEN [Suspect]
     Indication: MUSCLE SPASTICITY
     Dosage: UNK
     Dates: start: 20090120, end: 20101026
  4. ESCITALOPRAM [Suspect]
     Indication: ANXIETY
     Dosage: UNK
     Dates: start: 20090626, end: 20101025
  5. CIPRALEX [Concomitant]
  6. MODAFINIL [Concomitant]
     Indication: FATIGUE
     Dosage: UNK
     Dates: start: 20090324
  7. FERROUS SULFATE [Concomitant]
     Indication: ANAEMIA
     Dosage: UNK
     Dates: start: 20090311

REACTIONS (44)
  - ABASIA [None]
  - APHASIA [None]
  - ASTHENIA [None]
  - ATAXIA [None]
  - BRAIN OEDEMA [None]
  - CENTRAL NERVOUS SYSTEM LESION [None]
  - CEREBELLAR SYNDROME [None]
  - CEREBRAL ATROPHY [None]
  - COLOUR BLINDNESS [None]
  - CONSTIPATION [None]
  - CONVULSION [None]
  - CYANOSIS [None]
  - DEPRESSED MOOD [None]
  - DISINHIBITION [None]
  - DISORIENTATION [None]
  - DISTURBANCE IN ATTENTION [None]
  - DYSARTHRIA [None]
  - DYSMETROPSIA [None]
  - DYSPHONIA [None]
  - EXECUTIVE DYSFUNCTION [None]
  - GAIT DISTURBANCE [None]
  - GAMMA-GLUTAMYLTRANSFERASE INCREASED [None]
  - HEADACHE [None]
  - HEMIANOPIA HOMONYMOUS [None]
  - HYPERTENSION [None]
  - IRRITABILITY [None]
  - JOINT INJURY [None]
  - LOSS OF CONSCIOUSNESS [None]
  - MEMORY IMPAIRMENT [None]
  - METAMORPHOPSIA [None]
  - MUSCLE SPASTICITY [None]
  - MUSCULAR WEAKNESS [None]
  - NAUSEA [None]
  - PARESIS [None]
  - PERIPHERAL COLDNESS [None]
  - PYRAMIDAL TRACT SYNDROME [None]
  - SKIN LESION [None]
  - STATUS EPILEPTICUS [None]
  - TONGUE BITING [None]
  - TONIC CLONIC MOVEMENTS [None]
  - UNRESPONSIVE TO STIMULI [None]
  - URINARY INCONTINENCE [None]
  - VASOSPASM [None]
  - VISUAL IMPAIRMENT [None]
